FAERS Safety Report 6235532-7 (Version None)
Quarter: 2009Q2

REPORT INFORMATION
  Report Type: 
  Country: None (occurrence: None)
  Receive Date: 20090618
  Receipt Date: 20081023
  Transmission Date: 20091009
  Serious: No
  Sender: FDA-Public Use
  Company Number: US-ASTRAZENECA-2008UW23739

PATIENT
  Age: 55 Year
  Sex: Female
  Weight: 54.4 kg

DRUGS (4)
  1. RHINOCORT [Suspect]
     Indication: RHINITIS ALLERGIC
     Route: 045
  2. PREVACID [Concomitant]
  3. TOPAMAX [Concomitant]
  4. ADVAIR HFA [Concomitant]

REACTIONS (2)
  - EYE HAEMORRHAGE [None]
  - EYE PRURITUS [None]
